FAERS Safety Report 13076930 (Version 1)
Quarter: 2016Q4

REPORT INFORMATION
  Report Type: Spontaneous
  Country: JP (occurrence: JP)
  Receive Date: 20161230
  Receipt Date: 20161230
  Transmission Date: 20170207
  Serious: Yes (Death)
  Sender: FDA-Public Use
  Company Number: JP-PFIZER INC-2016600930

PATIENT
  Age: 50 Year
  Sex: Male

DRUGS (6)
  1. HALCION [Suspect]
     Active Substance: TRIAZOLAM
  2. ABILIFY [Suspect]
     Active Substance: ARIPIPRAZOLE
     Indication: BIPOLAR I DISORDER
     Dosage: 400 MG, UNK
     Route: 030
     Dates: start: 20160704, end: 20160728
  3. DEPAS [Suspect]
     Active Substance: ETIZOLAM
  4. DEPAKENE [Concomitant]
     Active Substance: VALPROIC ACID
     Dosage: UNK
     Dates: start: 20160507, end: 20160728
  5. LIMAS [Concomitant]
     Active Substance: LITHIUM CARBONATE
     Dosage: UNK
     Dates: start: 20160507, end: 20160728
  6. LODOPINE [Concomitant]
     Active Substance: ZOTEPINE
     Dosage: UNK
     Dates: start: 20160507, end: 20160728

REACTIONS (2)
  - Heat illness [Fatal]
  - Toxicity to various agents [Fatal]
